FAERS Safety Report 25579167 (Version 1)
Quarter: 2025Q3

REPORT INFORMATION
  Report Type: Report from Study
  Country: IN (occurrence: IN)
  Receive Date: 20250718
  Receipt Date: 20250718
  Transmission Date: 20251021
  Serious: Yes (Other)
  Sender: DAIICHI
  Company Number: IN-AstraZeneca-CH-00906875A

PATIENT
  Age: 65 Year
  Sex: Male
  Weight: 50.8 kg

DRUGS (1)
  1. ENHERTU [Suspect]
     Active Substance: FAM-TRASTUZUMAB DERUXTECAN-NXKI
     Indication: Product used for unknown indication
     Dosage: 200 ML, ONCE EVERY 3 WK
     Route: 040
     Dates: start: 202505

REACTIONS (8)
  - Tuberculosis [Unknown]
  - Asthenia [Unknown]
  - Pain [Unknown]
  - Limb discomfort [Unknown]
  - Ageusia [Unknown]
  - Sleep disorder [Unknown]
  - Irritability [Unknown]
  - Agitation [Unknown]
